FAERS Safety Report 24225226 (Version 1)
Quarter: 2024Q3

REPORT INFORMATION
  Report Type: Spontaneous
  Country: US (occurrence: US)
  Receive Date: 20240820
  Receipt Date: 20240820
  Transmission Date: 20241017
  Serious: Yes (Other)
  Sender: DR REDDYS
  Company Number: US-DRL-USA-LIT/USA/24/0011751

PATIENT
  Age: 17 Year
  Sex: Female

DRUGS (7)
  1. IBUPROFEN [Suspect]
     Active Substance: IBUPROFEN
     Indication: Occipital neuralgia
  2. MELOXICAM [Suspect]
     Active Substance: MELOXICAM
     Indication: Occipital neuralgia
  3. TRAMADOL [Concomitant]
     Active Substance: TRAMADOL\TRAMADOL HYDROCHLORIDE
     Indication: Occipital neuralgia
  4. LYRICA [Concomitant]
     Active Substance: PREGABALIN
     Indication: Occipital neuralgia
  5. GABAPENTIN [Concomitant]
     Active Substance: GABAPENTIN
     Indication: Occipital neuralgia
  6. CANNABIDIOL [Concomitant]
     Active Substance: CANNABIDIOL
     Indication: Occipital neuralgia
  7. MAGNESIUM [Concomitant]
     Active Substance: MAGNESIUM
     Indication: Occipital neuralgia

REACTIONS (1)
  - Drug ineffective for unapproved indication [Unknown]
